FAERS Safety Report 13960364 (Version 1)
Quarter: 2017Q3

REPORT INFORMATION
  Report Type: Spontaneous
  Country: US (occurrence: US)
  Receive Date: 20170912
  Receipt Date: 20170912
  Transmission Date: 20171128
  Serious: No
  Sender: FDA-Public Use
  Company Number: US-ALLERGAN-1714840US

PATIENT
  Age: 27 Year
  Sex: Female
  Weight: 61.22 kg

DRUGS (2)
  1. LEXAPRO [Suspect]
     Active Substance: ESCITALOPRAM OXALATE
     Indication: PRODUCT USED FOR UNKNOWN INDICATION
  2. VIVITROL [Concomitant]
     Active Substance: NALTREXONE
     Indication: ALCOHOLISM
     Dosage: 30 MG, Q MONTH
     Route: 030
     Dates: start: 201701

REACTIONS (1)
  - Headache [Unknown]

NARRATIVE: CASE EVENT DATE: 201701
